FAERS Safety Report 19688122 (Version 1)
Quarter: 2021Q3

REPORT INFORMATION
  Report Type: Spontaneous
  Country: US (occurrence: US)
  Receive Date: 20210811
  Receipt Date: 20210811
  Transmission Date: 20211014
  Serious: No
  Sender: FDA-Public Use
  Company Number: US-GALDERMA-US2021013930

PATIENT

DRUGS (5)
  1. PROACTIV DEEP CLEANSING WASH [Concomitant]
     Active Substance: SALICYLIC ACID
     Indication: ACNE
     Dosage: 1 DOSAGE FORM, QD
     Route: 061
     Dates: start: 202105, end: 20210702
  2. PROACTIV MD ADAPALENE ACNE TREATMENT [Suspect]
     Active Substance: ADAPALENE
     Indication: ACNE
     Dosage: 1 DOSAGE FORM,DAILY
     Route: 061
     Dates: start: 202105, end: 20210702
  3. PROACTIV MD DAILY OIL CONTROL SPF 30 [Suspect]
     Active Substance: AVOBENZONE\OCTISALATE\OCTOCRYLENE
     Indication: ACNE
     Dosage: 1 DOSAGE FORM, QD
     Route: 061
     Dates: start: 202105, end: 20210702
  4. PROACTIV REDNESS RELIEF SERUM [Concomitant]
     Indication: ACNE
     Dosage: 1 DOSAGE FORM, QD
     Route: 061
     Dates: start: 202105, end: 20210702
  5. PROACTIV MD DEEP CLEANSING FACE WASH [Concomitant]
     Active Substance: COSMETICS
     Indication: ACNE
     Dosage: 1 DOSAGE FORM, QD
     Route: 061
     Dates: start: 202105, end: 20210702

REACTIONS (2)
  - Acne [Recovering/Resolving]
  - Erythema [Recovering/Resolving]

NARRATIVE: CASE EVENT DATE: 202106
